FAERS Safety Report 18988088 (Version 1)
Quarter: 2021Q1

REPORT INFORMATION
  Report Type: Spontaneous
  Country: PL (occurrence: PL)
  Receive Date: 20210309
  Receipt Date: 20210309
  Transmission Date: 20210420
  Serious: Yes (Other)
  Sender: FDA-Public Use
  Company Number: PL-OTSUKA-2021_007175

PATIENT
  Sex: Male

DRUGS (21)
  1. CISPLATIN. [Suspect]
     Active Substance: CISPLATIN
     Indication: BONE MARROW CONDITIONING REGIMEN
  2. VINCRISTINE [Suspect]
     Active Substance: VINCRISTINE
     Indication: MYELOID LEUKAEMIA
  3. CYCLOPHOSPHAMIDE. [Suspect]
     Active Substance: CYCLOPHOSPHAMIDE
     Indication: MYELOID LEUKAEMIA
  4. BUSULFAN. [Suspect]
     Active Substance: BUSULFAN
     Indication: STEM CELL TRANSPLANT
  5. CISPLATIN. [Suspect]
     Active Substance: CISPLATIN
     Indication: STEM CELL TRANSPLANT
     Dosage: UNK
     Route: 065
  6. ETOPOSIDE. [Suspect]
     Active Substance: ETOPOSIDE
     Indication: MYELOID LEUKAEMIA
  7. CYCLOPHOSPHAMIDE. [Suspect]
     Active Substance: CYCLOPHOSPHAMIDE
     Indication: BONE MARROW CONDITIONING REGIMEN
  8. BUSULFAN. [Suspect]
     Active Substance: BUSULFAN
     Indication: BONE MARROW CONDITIONING REGIMEN
     Dosage: 16 X 1.2 MG/KG
     Route: 065
  9. MELPHALAN. [Suspect]
     Active Substance: MELPHALAN
     Indication: STEM CELL TRANSPLANT
     Dosage: 140 MG/M2
     Route: 065
  10. VINCRISTINE [Suspect]
     Active Substance: VINCRISTINE
     Indication: BONE MARROW CONDITIONING REGIMEN
  11. CARBOPLATIN. [Suspect]
     Active Substance: CARBOPLATIN
     Indication: STEM CELL TRANSPLANT
     Dosage: UNK
     Route: 065
  12. MELPHALAN. [Suspect]
     Active Substance: MELPHALAN
     Indication: MYELOID LEUKAEMIA
  13. MELPHALAN. [Suspect]
     Active Substance: MELPHALAN
     Indication: BONE MARROW CONDITIONING REGIMEN
  14. CISPLATIN. [Suspect]
     Active Substance: CISPLATIN
     Indication: MYELOID LEUKAEMIA
  15. VINCRISTINE [Suspect]
     Active Substance: VINCRISTINE
     Indication: STEM CELL TRANSPLANT
     Dosage: UNK
     Route: 065
  16. CARBOPLATIN. [Suspect]
     Active Substance: CARBOPLATIN
     Indication: MYELOID LEUKAEMIA
  17. CARBOPLATIN. [Suspect]
     Active Substance: CARBOPLATIN
     Indication: BONE MARROW CONDITIONING REGIMEN
  18. ETOPOSIDE. [Suspect]
     Active Substance: ETOPOSIDE
     Indication: STEM CELL TRANSPLANT
     Dosage: UNK
     Route: 065
  19. BUSULFAN. [Suspect]
     Active Substance: BUSULFAN
     Indication: MYELOID LEUKAEMIA
     Dosage: UNK
  20. ETOPOSIDE. [Suspect]
     Active Substance: ETOPOSIDE
     Indication: BONE MARROW CONDITIONING REGIMEN
  21. CYCLOPHOSPHAMIDE. [Suspect]
     Active Substance: CYCLOPHOSPHAMIDE
     Indication: STEM CELL TRANSPLANT
     Dosage: UNK
     Route: 065

REACTIONS (5)
  - Pyelonephritis [Unknown]
  - Parasitic pneumonia [Unknown]
  - Toxocariasis [Unknown]
  - Venoocclusive liver disease [Unknown]
  - Mucosal inflammation [Unknown]
